FAERS Safety Report 24459450 (Version 1)
Quarter: 2024Q4

REPORT INFORMATION
  Report Type: Spontaneous
  Country: PL (occurrence: PL)
  Receive Date: 20241018
  Receipt Date: 20241018
  Transmission Date: 20250114
  Serious: No
  Sender: ROCHE
  Company Number: PL-SANDOZ-SDZ2024PL026867

PATIENT
  Age: 69 Year
  Sex: Female

DRUGS (1)
  1. RITUXIMAB [Suspect]
     Active Substance: RITUXIMAB
     Indication: Pemphigus
     Dosage: A TOTAL OF 1 G PER CYCLE WAS ADMINISTERED ON A SINGLE DAY WITHIN A HOSPITAL SETTING
     Route: 042

REACTIONS (1)
  - Blood pressure decreased [Unknown]
